FAERS Safety Report 8709549 (Version 2)
Quarter: 2012Q4

REPORT INFORMATION
  Report Type: 
  Country: US (occurrence: US)
  Receive Date: 20120806
  Receipt Date: 20120926
  Transmission Date: 20130627
  Serious: No
  Sender: FDA-Public Use
  Company Number: US-ASTRAZENECA-2012SE51998

PATIENT
  Age: 86 Year
  Sex: Female
  Weight: 65.8 kg

DRUGS (5)
  1. SYMBICORT PMDI [Suspect]
     Indication: ASTHMA
     Dosage: 160/4.5 MCG TWO PUFFS TWICE A DAY
     Route: 055
     Dates: start: 2009
  2. SYMBICORT PMDI [Suspect]
     Indication: ASTHMA
     Dosage: 160/4.5 MCG TWO PUFFS ONCE A DAY
     Route: 055
  3. SYMBICORT PMDI [Suspect]
     Indication: ASTHMA
     Dosage: 160/4.5 MCG, ONE PUFF DAILY
     Route: 055
  4. CELEBREX [Concomitant]
  5. CIRCULATION PILLS [Concomitant]

REACTIONS (7)
  - Pneumonia [Unknown]
  - Dyspnoea [Unknown]
  - Body height decreased [Unknown]
  - Pulmonary congestion [Unknown]
  - Bronchitis [Unknown]
  - Drug ineffective [Unknown]
  - Off label use [Unknown]
